FAERS Safety Report 7177080-6 (Version None)
Quarter: 2010Q4

REPORT INFORMATION
  Report Type: 
  Country: None (occurrence: None)
  Receive Date: 20101220
  Receipt Date: 20101208
  Transmission Date: 20110411
  Serious: Yes (Other)
  Sender: FDA-Public Use
  Company Number: TR-GENZYME-THYM-1002170

PATIENT
  Age: 13 Year
  Sex: Female

DRUGS (5)
  1. THYMOGLOBULIN [Suspect]
     Indication: APLASTIC ANAEMIA
     Route: 042
  2. CYCLOSPORINE [Concomitant]
     Indication: APLASTIC ANAEMIA
  3. DANAZOL [Concomitant]
     Indication: APLASTIC ANAEMIA
  4. PREDNISOLONE [Concomitant]
     Indication: APLASTIC ANAEMIA
  5. FILGRASTIM [Concomitant]
     Indication: APLASTIC ANAEMIA

REACTIONS (1)
  - REVERSIBLE POSTERIOR LEUKOENCEPHALOPATHY SYNDROME [None]
